FAERS Safety Report 6959499-9 (Version None)
Quarter: 2010Q3

REPORT INFORMATION
  Report Type: 
  Country: None (occurrence: None)
  Receive Date: 20100827
  Receipt Date: 20100825
  Transmission Date: 20110219
  Serious: Yes (Other)
  Sender: FDA-Public Use
  Company Number: ACO_01786_2010

PATIENT
  Sex: Female
  Weight: 48.5349 kg

DRUGS (3)
  1. AMPYRA [Suspect]
     Indication: GAIT DISTURBANCE
     Dosage: (10 MG BID ORAL) ; (10 MG ONE DOSE ORAL)
     Route: 048
     Dates: start: 20100601, end: 20100802
  2. AMPYRA [Suspect]
     Indication: GAIT DISTURBANCE
     Dosage: (10 MG BID ORAL) ; (10 MG ONE DOSE ORAL)
     Route: 048
     Dates: start: 20100808, end: 20100808
  3. COPAXONE /03175301/ [Concomitant]

REACTIONS (3)
  - ASTHENIA [None]
  - BREAST CANCER STAGE III [None]
  - FALL [None]
